FAERS Safety Report 7465763-X (Version None)
Quarter: 2011Q2

REPORT INFORMATION
  Report Type: 
  Country: None (occurrence: None)
  Receive Date: 20110509
  Receipt Date: 20101102
  Transmission Date: 20111010
  Serious: No
  Sender: FDA-Public Use
  Company Number: US-SANOFI-AVENTIS-2010SA067670

PATIENT
  Age: 83 Year
  Sex: Female

DRUGS (4)
  1. LANTUS [Concomitant]
     Indication: TYPE 2 DIABETES MELLITUS
     Route: 058
  2. APIDRA [Suspect]
     Indication: TYPE 2 DIABETES MELLITUS
     Dosage: WITH MEALS
     Route: 065
  3. LANTUS [Suspect]
     Indication: TYPE 2 DIABETES MELLITUS
  4. SOLOSTAR [Concomitant]

REACTIONS (3)
  - DRUG DOSE OMISSION [None]
  - MENTAL IMPAIRMENT [None]
  - FEELING JITTERY [None]
